FAERS Safety Report 4560671-6 (Version None)
Quarter: 2005Q1

REPORT INFORMATION
  Report Type: 
  Country: None (occurrence: None)
  Receive Date: 20050124
  Receipt Date: 20050124
  Transmission Date: 20050727
  Serious: Yes (Life-Threatening, Hospitalization, Disabling)
  Sender: FDA-Public Use
  Company Number: None

PATIENT
  Age: 42 Year

DRUGS (1)
  1. THORAZINE [Suspect]
     Indication: INSOMNIA

REACTIONS (1)
  - TARDIVE DYSKINESIA [None]
